FAERS Safety Report 10238175 (Version 6)
Quarter: 2018Q2

REPORT INFORMATION
  Report Type: Report from Study
  Country: US (occurrence: US)
  Receive Date: 20140616
  Receipt Date: 20180601
  Transmission Date: 20180711
  Serious: Yes (Death, Hospitalization, Other)
  Sender: FDA-Public Use
  Company Number: US-SA-2014SA078238

PATIENT
  Age: 64 Year
  Sex: Female

DRUGS (1)
  1. AGALSIDASE BETA [Suspect]
     Active Substance: AGALSIDASE BETA
     Indication: FABRY^S DISEASE
     Dosage: 140 MG,QOW
     Route: 041
     Dates: start: 20041206

REACTIONS (37)
  - Cerebrovascular accident [Unknown]
  - Speech disorder [Recovering/Resolving]
  - Hypoaesthesia [Unknown]
  - Hypertonic bladder [Unknown]
  - Dyspnoea [Unknown]
  - Cellulitis [Unknown]
  - Therapeutic procedure [Unknown]
  - Mobility decreased [Unknown]
  - Headache [Unknown]
  - Hypersensitivity [Unknown]
  - Pelvic pain [Recovering/Resolving]
  - Psoriasis [Unknown]
  - Renal failure [Not Recovered/Not Resolved]
  - Cough [Unknown]
  - Fall [Unknown]
  - Rib fracture [Unknown]
  - Cataract [Recovering/Resolving]
  - Decreased appetite [Recovered/Resolved]
  - Dehydration [Recovered/Resolved]
  - Lung disorder [Unknown]
  - Swelling [Unknown]
  - Blood pressure abnormal [Unknown]
  - Influenza like illness [Unknown]
  - Vomiting [Unknown]
  - Dysuria [Recovering/Resolving]
  - Lung perforation [Unknown]
  - Catheterisation cardiac [Unknown]
  - Hypoaesthesia oral [Unknown]
  - Pain [Unknown]
  - Death [None]
  - Carotid artery stenosis [Unknown]
  - Unevaluable event [Not Recovered/Not Resolved]
  - Fluid retention [Not Recovered/Not Resolved]
  - Cerebrovascular accident [Recovering/Resolving]
  - Cognitive disorder [Recovering/Resolving]
  - Fatigue [Recovered/Resolved]
  - Urinary tract infection [Recovering/Resolving]

NARRATIVE: CASE EVENT DATE: 2014
